FAERS Safety Report 7640686-1 (Version None)
Quarter: 2011Q3

REPORT INFORMATION
  Report Type: 
  Country: None (occurrence: None)
  Receive Date: 20110728
  Receipt Date: 20110721
  Transmission Date: 20111222
  Serious: Yes (Hospitalization, Other)
  Sender: FDA-Public Use
  Company Number: US-BAYER-201014068NA

PATIENT
  Age: 20 Year
  Sex: Female
  Weight: 61.224 kg

DRUGS (3)
  1. YAZ [Suspect]
     Indication: CONTRACEPTION
     Dosage: UNK
     Route: 048
     Dates: start: 20060101, end: 20080101
  2. RANITIDINE [Concomitant]
     Dosage: 150 MG, UNK
  3. TYLENOL-500 [Concomitant]

REACTIONS (2)
  - CHOLELITHIASIS [None]
  - CHOLECYSTECTOMY [None]
